FAERS Safety Report 17946798 (Version 2)
Quarter: 2020Q3

REPORT INFORMATION
  Report Type: Spontaneous
  Country: US (occurrence: US)
  Receive Date: 20200625
  Receipt Date: 20200930
  Transmission Date: 20201103
  Serious: Yes (Other)
  Sender: FDA-Public Use
  Company Number: US-ALLERGAN-2024440US

PATIENT
  Sex: Female

DRUGS (2)
  1. NEPAFENAC [Suspect]
     Active Substance: NEPAFENAC
     Indication: CYSTOID MACULAR OEDEMA
     Dosage: IN BOTH EYES
     Route: 061
  2. PREDNISOLONE ACETATE, 1.0% [Suspect]
     Active Substance: PREDNISOLONE ACETATE
     Indication: CYSTOID MACULAR OEDEMA
     Dosage: IN BOTH EYES
     Route: 061

REACTIONS (5)
  - Off label use [Unknown]
  - Corneal epithelium defect [Recovered/Resolved with Sequelae]
  - Infectious crystalline keratopathy [Recovered/Resolved with Sequelae]
  - Streptococcal infection [Recovered/Resolved with Sequelae]
  - Corneal infiltrates [Recovered/Resolved with Sequelae]
